FAERS Safety Report 9989361 (Version 1)
Quarter: 2014Q1

REPORT INFORMATION
  Report Type: Spontaneous
  Country: NL (occurrence: NL)
  Receive Date: 20140310
  Receipt Date: 20140310
  Transmission Date: 20141002
  Serious: Yes (Other)
  Sender: FDA-Public Use
  Company Number: NL-SA-2014SA025449

PATIENT
  Sex: Male

DRUGS (2)
  1. JEVTANA [Suspect]
     Indication: PRODUCT USED FOR UNKNOWN INDICATION
     Route: 065
     Dates: start: 201401, end: 201401
  2. JEVTANA [Suspect]
     Indication: PRODUCT USED FOR UNKNOWN INDICATION
     Route: 065
     Dates: start: 201402, end: 201402

REACTIONS (2)
  - Malaise [Unknown]
  - Hyponatraemia [Unknown]
